FAERS Safety Report 7978977-7 (Version None)
Quarter: 2011Q4

REPORT INFORMATION
  Report Type: 
  Country: None (occurrence: None)
  Receive Date: 20111130
  Receipt Date: 20111122
  Transmission Date: 20120403
  Serious: Yes (Other)
  Sender: FDA-Public Use
  Company Number: 2011SP054872

PATIENT
  Age: 31 Year
  Sex: Female
  Weight: 50.8029 kg

DRUGS (1)
  1. NUVARING [Suspect]
     Indication: CONTRACEPTION
     Dosage: ;VAG
     Route: 067
     Dates: start: 20110801, end: 20111116

REACTIONS (7)
  - BEDRIDDEN [None]
  - ABASIA [None]
  - DRUG WITHDRAWAL SYNDROME [None]
  - NAUSEA [None]
  - VOMITING [None]
  - PYREXIA [None]
  - MYALGIA [None]
